FAERS Safety Report 9394181 (Version 2)
Quarter: 2013Q3

REPORT INFORMATION
  Report Type: Report from Study
  Country: US (occurrence: US)
  Receive Date: 20130711
  Receipt Date: 20130730
  Transmission Date: 20140515
  Serious: Yes (Other)
  Sender: FDA-Public Use
  Company Number: US-ROCHE-1247252

PATIENT
  Age: 87 Year
  Sex: Male

DRUGS (1)
  1. ALTEPLASE [Suspect]
     Indication: ISCHAEMIC STROKE
     Route: 065
     Dates: start: 20091001, end: 20120630

REACTIONS (2)
  - Hypofibrinogenaemia [Unknown]
  - International normalised ratio abnormal [Unknown]
